FAERS Safety Report 5247973-5 (Version None)
Quarter: 2007Q1

REPORT INFORMATION
  Report Type: 
  Country: None (occurrence: None)
  Receive Date: 20070226
  Receipt Date: 20070226
  Transmission Date: 20070707
  Serious: Yes (Other)
  Sender: FDA-Public Use
  Company Number: None

PATIENT
  Age: 54 Year
  Sex: Female
  Weight: 52.1637 kg

DRUGS (2)
  1. BUPROPION HCL [Suspect]
     Indication: DEPRESSION
     Dosage: 300 MG 1 DAILY
     Dates: start: 20070120, end: 20070221
  2. WELLBUTRIN XL [Suspect]

REACTIONS (9)
  - BACK PAIN [None]
  - DEPRESSION [None]
  - DRUG INEFFECTIVE [None]
  - DYSARTHRIA [None]
  - DYSPEPSIA [None]
  - LISTLESS [None]
  - MOOD SWINGS [None]
  - PANIC ATTACK [None]
  - PHARMACEUTICAL PRODUCT COMPLAINT [None]
